FAERS Safety Report 20568799 (Version 1)
Quarter: 2022Q1

REPORT INFORMATION
  Report Type: Spontaneous
  Country: US (occurrence: US)
  Receive Date: 20220308
  Receipt Date: 20220308
  Transmission Date: 20220423
  Serious: No
  Sender: FDA-Public Use
  Company Number: US-HARMONY BIOSCIENCES-2021HMY02407

PATIENT
  Sex: Female

DRUGS (3)
  1. WAKIX [Suspect]
     Active Substance: PITOLISANT HYDROCHLORIDE
     Indication: Narcolepsy
     Dosage: 8.9 MG, 1X/DAY
     Dates: start: 2021, end: 2021
  2. WAKIX [Suspect]
     Active Substance: PITOLISANT HYDROCHLORIDE
     Dosage: 17.8 MG, 1X/DAY
     Dates: start: 2021, end: 2021
  3. WAKIX [Suspect]
     Active Substance: PITOLISANT HYDROCHLORIDE
     Dosage: 8.9 MG, 1X/DAY
     Dates: start: 2021

REACTIONS (2)
  - Abdominal discomfort [Unknown]
  - Hallucination [Unknown]

NARRATIVE: CASE EVENT DATE: 20210101
